FAERS Safety Report 12179725 (Version 1)
Quarter: 2016Q1

REPORT INFORMATION
  Report Type: Spontaneous
  Country: US (occurrence: US)
  Receive Date: 20160315
  Receipt Date: 20160315
  Transmission Date: 20160526
  Serious: No
  Sender: FDA-Public Use
  Company Number: PHEH2016US006057

PATIENT
  Sex: Male
  Weight: 20.86 kg

DRUGS (1)
  1. FOCALIN [Suspect]
     Active Substance: DEXMETHYLPHENIDATE HYDROCHLORIDE
     Indication: PRODUCT USED FOR UNKNOWN INDICATION
     Dosage: UNK MG, QD (5 MG OR 10 MG)
     Route: 065
     Dates: start: 2015

REACTIONS (2)
  - Insomnia [Unknown]
  - Drug ineffective [Unknown]
